FAERS Safety Report 12481045 (Version 1)
Quarter: 2016Q2

REPORT INFORMATION
  Report Type: Spontaneous
  Country: GB (occurrence: GB)
  Receive Date: 20160620
  Receipt Date: 20160620
  Transmission Date: 20160815
  Serious: Yes (Life-Threatening, Hospitalization)
  Sender: FDA-Public Use
  Company Number: GB-TEVA-667400ACC

PATIENT
  Age: 66 Year
  Sex: Male

DRUGS (7)
  1. ALLOPURINOL. [Concomitant]
     Active Substance: ALLOPURINOL
  2. LEVOTHYROXINE. [Concomitant]
     Active Substance: LEVOTHYROXINE
  3. SERETIDE [Concomitant]
     Active Substance: FLUTICASONE PROPIONATE\SALMETEROL XINAFOATE
  4. CITALOPRAM [Suspect]
     Active Substance: CITALOPRAM HYDROBROMIDE
     Indication: ANXIETY
     Dosage: 20 MILLIGRAM DAILY;
     Route: 048
     Dates: end: 20160517
  5. VENTOLIN [Concomitant]
     Active Substance: ALBUTEROL SULFATE
     Route: 055
  6. LACTULOSE. [Concomitant]
     Active Substance: LACTULOSE
  7. ATORVASTATIN [Suspect]
     Active Substance: ATORVASTATIN
     Indication: HYPERCHOLESTEROLAEMIA
     Dosage: 5 MILLIGRAM DAILY; ON ALTERNATE DAYS
     Route: 048
     Dates: end: 20160517

REACTIONS (3)
  - Cardiac arrest [Unknown]
  - Swollen tongue [Recovering/Resolving]
  - Obstructive airways disorder [Recovering/Resolving]

NARRATIVE: CASE EVENT DATE: 20160517
